FAERS Safety Report 6754206-7 (Version None)
Quarter: 2010Q2

REPORT INFORMATION
  Report Type: 
  Country: None (occurrence: None)
  Receive Date: 20100603
  Receipt Date: 20100521
  Transmission Date: 20101027
  Serious: Yes (Hospitalization, Disabling, Other)
  Sender: FDA-Public Use
  Company Number: US-ELI_LILLY_AND_COMPANY-US200911005488

PATIENT
  Sex: Male
  Weight: 102.49 kg

DRUGS (13)
  1. ZYPREXA [Suspect]
     Indication: ANXIETY
     Dosage: 1 D/F, UNK
     Dates: end: 20060101
  2. PROZAC [Suspect]
     Dates: start: 19970601
  3. ARIPIPRAZOLE [Concomitant]
     Dosage: 10 MG, UNK
     Dates: start: 20070101
  4. QUETIAPINE [Concomitant]
     Dosage: 100 MG, EACH EVENING
     Dates: start: 20070101
  5. ZIPRASIDONE HCL [Concomitant]
     Dosage: 40 MG, 2/D
     Dates: start: 20060101
  6. BUPROPION HCL [Concomitant]
     Dosage: 150 MG, DAILY (1/D)
     Route: 048
     Dates: start: 20060101, end: 20090101
  7. PAROXETINE [Concomitant]
     Dosage: 25 MG, UNK
     Dates: start: 20070101, end: 20080101
  8. PAROXETINE [Concomitant]
     Dosage: 37.5 MG, UNK
  9. METOPROLOL TARTRATE [Concomitant]
     Dosage: 100 MG, UNK
     Dates: start: 20070101
  10. PREDNISONE [Concomitant]
     Dosage: 20 MG, UNK
  11. HYDROCHLOROTHIAZIDE [Concomitant]
     Dosage: 25 MG, DAILY (1/D)
     Route: 048
  12. AMITRIPTYLINE [Concomitant]
     Indication: INSOMNIA
     Dosage: 10 MG, EACH EVENING
  13. CLONAZEPAM [Concomitant]
     Dosage: 1 MG, UNK

REACTIONS (10)
  - BLOOD CHOLESTEROL INCREASED [None]
  - BLOOD TRIGLYCERIDES INCREASED [None]
  - DEEP VEIN THROMBOSIS [None]
  - DIABETES MELLITUS [None]
  - DRUG INEFFECTIVE [None]
  - ERECTILE DYSFUNCTION [None]
  - INSULIN RESISTANCE [None]
  - OBESITY [None]
  - PULMONARY EMBOLISM [None]
  - WEIGHT INCREASED [None]
